FAERS Safety Report 5107716-2 (Version None)
Quarter: 2006Q3

REPORT INFORMATION
  Report Type: 
  Country: None (occurrence: None)
  Receive Date: 20060914
  Receipt Date: 20060825
  Transmission Date: 20061208
  Serious: Yes (Hospitalization)
  Sender: FDA-Public Use
  Company Number: 226310

PATIENT
  Age: 72 Year
  Sex: Female
  Weight: 92 kg

DRUGS (20)
  1. AVASTIN [Suspect]
     Indication: COLORECTAL CANCER METASTATIC
     Dosage: 750 MG, Q3W, INTRAVENOUS
     Route: 042
     Dates: start: 20060206
  2. MITOMYCIN [Suspect]
     Indication: COLORECTAL CANCER METASTATIC
  3. XELODA [Suspect]
     Indication: COLORECTAL CANCER METASTATIC
     Dosage: 3300 MG, QD, ORAL
     Route: 048
     Dates: start: 20060206
  4. UNSPECIFIED MEDICATIONS (GENERIC COMPONENT (S) [Concomitant]
  5. PERINDOPRIL ERBUMINE [Concomitant]
  6. INDAPAMIDE [Concomitant]
  7. SPIRONOLACTONE [Concomitant]
  8. PAROXETINE (PAROXETINE HYDROCHLORIDE) [Concomitant]
  9. DESLORATADINE (DESLORATADINE) [Concomitant]
  10. PYROXIN (PYRIDOXINE HYDROCHLORIDE) [Concomitant]
  11. PANADEINE FORTE (ACETAMINOPHEN, CODEINE PHOSPHATE) [Concomitant]
  12. FUROSEMIDE [Concomitant]
  13. CEPHALEXIN [Concomitant]
  14. NYSTATIN [Concomitant]
  15. DIFFLAM ORAL RINSE (BENZYDAMINE HYDROCHLORIDE) [Concomitant]
  16. METOCLOPRAMIDE (METOCLOPRAMID HYDROCHLORIDE) [Concomitant]
  17. OXAZEPAM [Concomitant]
  18. DEXAMETHASONE (DEDAMETHASONE) [Suspect]
  19. ONDANSETRON [Concomitant]
  20. LOPERAMIDE [Concomitant]

REACTIONS (7)
  - BLOOD ALBUMIN INCREASED [None]
  - BLOOD BILIRUBIN INCREASED [None]
  - CREATININE RENAL CLEARANCE DECREASED [None]
  - DRUG TOXICITY [None]
  - FISTULA [None]
  - PLATELET COUNT INCREASED [None]
  - SCLERODERMA RENAL CRISIS [None]
